FAERS Safety Report 8827823 (Version 2)
Quarter: 2012Q4

REPORT INFORMATION
  Report Type: Report from Study
  Country: US (occurrence: US)
  Receive Date: 20121005
  Receipt Date: 20121102
  Transmission Date: 20130627
  Serious: No
  Sender: FDA-Public Use
  Company Number: US-VERTEX PHARMACEUTICAL INC.-2012-021708

PATIENT

DRUGS (12)
  1. VX-950 [Suspect]
     Indication: HEPATITIS C
     Dosage: 750 mg, tid
     Route: 048
  2. RIBAVIRIN [Suspect]
     Indication: HEPATITIS C
     Dosage: 200 mg, qd
     Route: 048
  3. PEGASYS [Suspect]
     Indication: HEPATITIS C
     Dosage: 180 ?g, qd
     Route: 058
  4. ASPIRIN [Concomitant]
     Dosage: 325 mg, UNK
  5. TOPROL [Concomitant]
     Dosage: 25 mg, UNK
  6. METFORMIN [Concomitant]
     Dosage: 1000 mg, UNK
  7. FOLTX [Concomitant]
  8. LISINOPRIL [Concomitant]
     Dosage: 40 mg, UNK
  9. GLIPIZIDE [Concomitant]
     Dosage: 5 mg, UNK
  10. VITAMIN B-6 [Concomitant]
     Dosage: 100 mg, UNK
  11. CALCIUM +VIT D [Concomitant]
  12. ALENDRONATE [Concomitant]
     Dosage: 10 mg, UNK

REACTIONS (4)
  - Insomnia [Unknown]
  - White blood cell count decreased [Unknown]
  - Fatigue [Unknown]
  - Nausea [Unknown]
